FAERS Safety Report 9690118 (Version 3)
Quarter: 2014Q1

REPORT INFORMATION
  Report Type: Report from Study
  Country: IN (occurrence: IN)
  Receive Date: 20131115
  Receipt Date: 20140227
  Transmission Date: 20141002
  Serious: Yes (Hospitalization)
  Sender: FDA-Public Use
  Company Number: PHHY2013IN128310

PATIENT
  Age: 38 Year
  Sex: Male
  Weight: 57 kg

DRUGS (20)
  1. MYCOPHENOLIC ACID [Suspect]
     Indication: RENAL TRANSPLANT
     Dosage: 540 MG, (360-0-180)
     Route: 048
     Dates: start: 20130910
  2. MYCOPHENOLIC ACID [Suspect]
     Indication: IMMUNOSUPPRESSION
     Dosage: 540 MG, BID
  3. TACROLIMUS [Suspect]
     Indication: IMMUNOSUPPRESSION
     Route: 048
     Dates: start: 20130910
  4. MYCOPHENOLATE MOFETIL [Suspect]
     Indication: IMMUNOSUPPRESSION
     Dosage: UNK
  5. OMNACORTIL//PREDNISOLONE [Concomitant]
     Dosage: 35 MG, QD
  6. OMNACORTIL//PREDNISOLONE [Concomitant]
     Dosage: 10 MG, QD
  7. OMNACORTIL//PREDNISOLONE [Concomitant]
     Dosage: 7.5 UKN, QD
  8. SEPTRAN [Concomitant]
     Dosage: 1 UKN, QD
  9. VALCYTE [Concomitant]
     Dosage: 450 UKN, BID
  10. CILACAR [Concomitant]
     Dosage: 10 MG, QD
  11. ECOSPRIN [Concomitant]
     Dosage: 150 UKN, QD
  12. CALTIVE [Concomitant]
     Dosage: 0.25 MG, QD
  13. ROZAVEL [Concomitant]
     Dosage: 10 MG, QD
  14. VELTAM [Concomitant]
     Dosage: 0.4 UKN, QD
  15. OROFER                             /01249901/ [Concomitant]
     Dosage: 1 UKN, BID
  16. SALT [Concomitant]
     Dosage: UNK
  17. PRIMAQUINE [Concomitant]
     Dosage: 15 MG, QD FOR 14 DAYS
  18. TAZOBACTAM [Concomitant]
     Dosage: UNK UKN, UNK
  19. LOFOX [Concomitant]
     Dosage: 750 MG, QD
  20. CIPLOX TZ [Concomitant]
     Dosage: 2 DF, X 5 DAYS

REACTIONS (10)
  - Urinary tract inflammation [Recovering/Resolving]
  - Pyrexia [Not Recovered/Not Resolved]
  - Diarrhoea [Recovered/Resolved]
  - Glucose-6-phosphate dehydrogenase abnormal [Recovering/Resolving]
  - White blood cell count increased [Recovering/Resolving]
  - Blood chloride increased [Recovering/Resolving]
  - Monocyte count increased [Unknown]
  - White blood cell count decreased [Unknown]
  - Lymphocyte count decreased [Recovering/Resolving]
  - Haemoglobin decreased [Recovering/Resolving]
